FAERS Safety Report 6368168-8 (Version None)
Quarter: 2009Q3

REPORT INFORMATION
  Report Type: 
  Country: None (occurrence: None)
  Receive Date: 20090922
  Receipt Date: 20090910
  Transmission Date: 20100115
  Serious: Yes (Hospitalization)
  Sender: FDA-Public Use
  Company Number: PHEH2009US10841

PATIENT
  Sex: Male

DRUGS (1)
  1. RECLAST [Suspect]

REACTIONS (1)
  - LOSS OF CONSCIOUSNESS [None]
